FAERS Safety Report 18570217 (Version 5)
Quarter: 2021Q1

REPORT INFORMATION
  Report Type: Spontaneous
  Country: CA (occurrence: CA)
  Receive Date: 20201202
  Receipt Date: 20210111
  Transmission Date: 20210419
  Serious: Yes (Other)
  Sender: FDA-Public Use
  Company Number: CA-PFIZER INC-2018484534

PATIENT
  Age: 63 Year
  Sex: Female

DRUGS (12)
  1. FULVESTRANT. [Concomitant]
     Active Substance: FULVESTRANT
     Dosage: 600 MG, CYCLIC, (IN CLINIC EVERY 2 WEEKS X 3 (DAY 1, 15 AND 29) FOR CYCLE 1)
     Route: 030
  2. SYMBICORT [Concomitant]
     Active Substance: BUDESONIDE\FORMOTEROL FUMARATE DIHYDRATE
     Dosage: UNK
  3. BUDESONIDE. [Concomitant]
     Active Substance: BUDESONIDE
     Dosage: UNK
  4. CALCIUM [Concomitant]
     Active Substance: CALCIUM
     Dosage: 500 MG, 2X/DAY
  5. VITAMIN D [COLECALCIFEROL] [Concomitant]
     Active Substance: CHOLECALCIFEROL
     Dosage: UNK, 1X/DAY (REPORTED AS 800)
  6. IODINE. [Concomitant]
     Active Substance: IODINE
     Dosage: UNK
  7. IBRANCE [Suspect]
     Active Substance: PALBOCICLIB
     Indication: BREAST CANCER METASTATIC
     Dosage: 125 MG, CYCLIC (FOR 21 DAYS OUT OF 28 (4 WEEKLY ADJUSTED TO HER HEMATOLOGIC TOLERANCE ))
     Route: 048
     Dates: start: 20201118
  8. SENOKOT [Concomitant]
     Active Substance: SENNOSIDES
     Dosage: UNK, AS NEEDED
  9. LETROZOLE. [Concomitant]
     Active Substance: LETROZOLE
     Dosage: UNK
  10. METOCLOPRAMIDE. [Concomitant]
     Active Substance: METOCLOPRAMIDE
     Indication: VOMITING
  11. VENTOLIN [Concomitant]
     Active Substance: ALBUTEROL SULFATE
     Dosage: UNK
  12. METOCLOPRAMIDE. [Concomitant]
     Active Substance: METOCLOPRAMIDE
     Indication: NAUSEA
     Dosage: 10 MG, AS NEEDED (EVERY 4 TO 6 HOURS)
     Route: 048

REACTIONS (16)
  - Malaise [Not Recovered/Not Resolved]
  - Blood alkaline phosphatase increased [Unknown]
  - Bicytopenia [Unknown]
  - Abdominal pain [Unknown]
  - Platelet count decreased [Not Recovered/Not Resolved]
  - Contusion [Unknown]
  - Haemoglobin decreased [Unknown]
  - Anaemia [Unknown]
  - Carbohydrate antigen 15-3 increased [Unknown]
  - Alanine aminotransferase increased [Unknown]
  - Dyspnoea [Unknown]
  - Anxiety [Unknown]
  - Urticaria [Unknown]
  - Asthenia [Unknown]
  - Thrombocytopenia [Unknown]
  - Fatigue [Unknown]

NARRATIVE: CASE EVENT DATE: 2020
